FAERS Safety Report 4585130-6 (Version None)
Quarter: 2005Q1

REPORT INFORMATION
  Report Type: 
  Country: None (occurrence: None)
  Receive Date: 20050217
  Receipt Date: 20050105
  Transmission Date: 20050727
  Serious: No
  Sender: FDA-Public Use
  Company Number: US-GLAXOSMITHKLINE-A0539520A

PATIENT
  Age: 51 Year
  Sex: Female

DRUGS (2)
  1. WELLBUTRIN XL [Suspect]
     Indication: DEPRESSION
     Route: 048
     Dates: start: 20050105
  2. THYROID TAB [Concomitant]

REACTIONS (1)
  - SOMNOLENCE [None]
